FAERS Safety Report 8381871-3 (Version None)
Quarter: 2012Q2

REPORT INFORMATION
  Report Type: 
  Country: None (occurrence: None)
  Receive Date: 20120522
  Receipt Date: 20120522
  Transmission Date: 20120825
  Serious: Yes (Other)
  Sender: FDA-Public Use
  Company Number: None

PATIENT
  Age: 66 Year
  Sex: Female
  Weight: 79.3795 kg

DRUGS (4)
  1. REMICADE [Suspect]
     Indication: PARAPSORIASIS
     Dosage: LOADING DOSE 400 MG 0/2/4 WEEKS IV DRIP 500 MG Q 4 WEEKS IV DRIP
     Route: 041
     Dates: start: 20110628, end: 20111004
  2. REMICADE [Suspect]
     Indication: ARTHRITIS
     Dosage: LOADING DOSE 400 MG 0/2/4 WEEKS IV DRIP 500 MG Q 4 WEEKS IV DRIP
     Route: 041
     Dates: start: 20110628, end: 20111004
  3. REMICADE [Suspect]
     Indication: PARAPSORIASIS
     Dosage: LOADING DOSE 400 MG 0/2/4 WEEKS IV DRIP 500 MG Q 4 WEEKS IV DRIP
     Route: 041
     Dates: start: 20111207, end: 20120229
  4. REMICADE [Suspect]
     Indication: ARTHRITIS
     Dosage: LOADING DOSE 400 MG 0/2/4 WEEKS IV DRIP 500 MG Q 4 WEEKS IV DRIP
     Route: 041
     Dates: start: 20111207, end: 20120229

REACTIONS (6)
  - EXCORIATION [None]
  - SCRATCH [None]
  - RASH PRURITIC [None]
  - PSORIASIS [None]
  - INSOMNIA [None]
  - BLISTER [None]
